FAERS Safety Report 22924912 (Version 3)
Quarter: 2023Q4

REPORT INFORMATION
  Report Type: Report from Study
  Country: CN (occurrence: None)
  Receive Date: 20230908
  Receipt Date: 20231201
  Transmission Date: 20240109
  Serious: Yes (Hospitalization)
  Sender: FDA-Public Use
  Company Number: CN-ROCHE-3416600

PATIENT
  Age: 66 Year
  Sex: Male
  Weight: 54 kg

DRUGS (10)
  1. ATEZOLIZUMAB [Suspect]
     Active Substance: ATEZOLIZUMAB
     Indication: Non-small cell lung cancer metastatic
     Dosage: START DATE OF MOST RECENT DOSE OF STUDY DRUG PRIOR TO AE/SAE: 18/AUG/2023
     Route: 041
     Dates: start: 20211206
  2. BEVACIZUMAB [Suspect]
     Active Substance: BEVACIZUMAB
     Indication: Non-small cell lung cancer metastatic
     Dosage: START DATE OF MOST RECENT DOSE OF STUDY DRUG PRIOR TO AE/SAE: 18/AUG/2023 AT 825 MG
     Route: 042
     Dates: start: 20211206
  3. CARBOPLATIN [Suspect]
     Active Substance: CARBOPLATIN
     Indication: Non-small cell lung cancer metastatic
     Dosage: START DATE OF MOST RECENT DOSE OF STUDY DRUG PRIOR TO AE/SAE: 17/FEB/2022 AT 738 MG
     Route: 042
     Dates: start: 20211206
  4. PEMETREXED [Suspect]
     Active Substance: PEMETREXED
     Indication: Non-small cell lung cancer metastatic
     Dosage: START DATE OF MOST RECENT DOSE OF STUDY DRUG PRIOR TO AE/SAE: 18/AUG/2023 AT 775 MG
     Route: 042
     Dates: start: 20211206
  5. FOLIC ACID [Concomitant]
     Active Substance: FOLIC ACID
     Indication: Chemotherapy
     Dosage: YES
     Dates: start: 20211201
  6. IRBESARTAN [Concomitant]
     Active Substance: IRBESARTAN
     Indication: Face oedema
     Dates: start: 20230406
  7. IRBESARTAN [Concomitant]
     Active Substance: IRBESARTAN
     Indication: Localised oedema
  8. IRBESARTAN [Concomitant]
     Active Substance: IRBESARTAN
     Indication: Hypotension
  9. IRBESARTAN [Concomitant]
     Active Substance: IRBESARTAN
     Indication: Albuminuria
  10. HYDROCHLOROTHIAZIDE [Concomitant]
     Active Substance: HYDROCHLOROTHIAZIDE
     Indication: Hypertension
     Dates: start: 20230406

REACTIONS (1)
  - Gingivitis [Recovered/Resolved]

NARRATIVE: CASE EVENT DATE: 20230824
